FAERS Safety Report 8083874-5 (Version None)
Quarter: 2012Q1

REPORT INFORMATION
  Report Type: 
  Country: None (occurrence: None)
  Receive Date: 20120128
  Receipt Date: 20110207
  Transmission Date: 20120608
  Serious: No
  Sender: FDA-Public Use
  Company Number: US-ABBOTT-11P-163-0703200-00

PATIENT
  Age: 23 Year
  Sex: Female

DRUGS (9)
  1. HUMIRA [Suspect]
     Indication: CROHN'S DISEASE
     Dates: start: 20101110
  2. IMODIUM [Concomitant]
     Indication: PRODUCT USED FOR UNKNOWN INDICATION
  3. SULFASALAZINE [Concomitant]
     Indication: PRODUCT USED FOR UNKNOWN INDICATION
  4. ONDANSETRON HCL [Concomitant]
     Indication: NAUSEA
     Dosage: USUALLY ON THE DAY TAKES HUMIRA PEN INJECTION; AS NEEDED
  5. BENADRYL [Concomitant]
     Indication: HYPERSENSITIVITY
     Dosage: ONCE IN A WHILE
  6. FLAGYL [Concomitant]
     Indication: PRODUCT USED FOR UNKNOWN INDICATION
     Dosage: ON AND OFF SINCE STARTING HUMIRA
  7. NASONEX [Concomitant]
     Indication: ASTHMA
     Dosage: AS NEEDED
  8. NECOND [Concomitant]
     Indication: ORAL CONTRACEPTION
  9. CIPROFLOXACIN [Concomitant]
     Indication: PRODUCT USED FOR UNKNOWN INDICATION
     Dosage: ON AND OFF SINCE STARTING HUMIRA

REACTIONS (5)
  - COUGH [None]
  - UPPER RESPIRATORY TRACT CONGESTION [None]
  - PYREXIA [None]
  - NASAL CONGESTION [None]
  - SINUSITIS [None]
